FAERS Safety Report 12871506 (Version 1)
Quarter: 2016Q4

REPORT INFORMATION
  Report Type: Spontaneous
  Country: US (occurrence: US)
  Receive Date: 20161021
  Receipt Date: 20161021
  Transmission Date: 20170207
  Serious: No
  Sender: FDA-Public Use
  Company Number: US-PURDUE-USA-2016-0131284

PATIENT
  Sex: Female

DRUGS (1)
  1. OXYCONTIN [Suspect]
     Active Substance: OXYCODONE HYDROCHLORIDE
     Indication: SURGERY
     Dosage: 20 MG, Q12H
     Route: 048

REACTIONS (4)
  - Stress [Unknown]
  - Hyperhidrosis [Unknown]
  - Drug ineffective [Unknown]
  - Pain [Unknown]
